FAERS Safety Report 5767561-1 (Version None)
Quarter: 2008Q2

REPORT INFORMATION
  Report Type: 
  Country: None (occurrence: None)
  Receive Date: 20080612
  Receipt Date: 20080605
  Transmission Date: 20081010
  Serious: Yes (Hospitalization)
  Sender: FDA-Public Use
  Company Number: GB-ROCHE-568803

PATIENT
  Sex: Female
  Weight: 108 kg

DRUGS (2)
  1. ORLISTAT [Suspect]
     Route: 048
     Dates: start: 20080216, end: 20080601
  2. UNSPECIFIED MEDICATIONS [Concomitant]

REACTIONS (1)
  - MANIA [None]
